FAERS Safety Report 4633842-8 (Version None)
Quarter: 2005Q2

REPORT INFORMATION
  Report Type: 
  Country: None (occurrence: None)
  Receive Date: 20050411
  Receipt Date: 20050401
  Transmission Date: 20051028
  Serious: Yes (Other)
  Sender: FDA-Public Use
  Company Number: CHPA2005US01022

PATIENT
  Age: 50 Year
  Sex: Female
  Weight: 60.3 kg

DRUGS (3)
  1. THERAFLU MS SEVERE COLD AND CONGESTION NON DROWSY NATURAL (NCH) (ACETA [Suspect]
     Indication: NASOPHARYNGITIS
     Dosage: 1 PACKET TID, ORAL
     Route: 048
     Dates: start: 20050325, end: 20050325
  2. THERAFLU MS SEVERE COLD AND CONGESTION NON DROWSY NATURAL (NCH) (ACETA [Suspect]
     Indication: NASOPHARYNGITIS
     Dosage: 1 PACKET TID, ORAL
     Route: 048
     Dates: start: 20050326, end: 20050327
  3. ENTEX (GUAIFENESIN, PHENYLEPHRINE HYDROCHLORIDE) [Concomitant]

REACTIONS (6)
  - DIZZINESS [None]
  - EMOTIONAL DISTRESS [None]
  - HEPATITIS [None]
  - HYPERHIDROSIS [None]
  - HYPOVENTILATION [None]
  - MEDICATION ERROR [None]
